FAERS Safety Report 17213506 (Version 2)
Quarter: 2020Q1

REPORT INFORMATION
  Report Type: Spontaneous
  Country: US (occurrence: US)
  Receive Date: 20191230
  Receipt Date: 20200103
  Transmission Date: 20200409
  Serious: Yes (Other)
  Sender: FDA-Public Use
  Company Number: US-PFIZER INC-2019554516

PATIENT
  Age: 36 Year
  Sex: Male
  Weight: 80.74 kg

DRUGS (2)
  1. LORBRENA [Suspect]
     Active Substance: LORLATINIB
     Indication: NEUROBLASTOMA
     Dosage: 100 MG, DAILY
     Route: 048
     Dates: end: 20191213
  2. TYLENOL [Concomitant]
     Active Substance: ACETAMINOPHEN
     Indication: PAIN
     Dosage: UNK , AS NEEDED

REACTIONS (9)
  - Memory impairment [Unknown]
  - Feeling abnormal [Unknown]
  - Urinary incontinence [Unknown]
  - Anxiety [Unknown]
  - Visual impairment [Unknown]
  - Bladder pain [Unknown]
  - Mood swings [Unknown]
  - Off label use [Unknown]
  - Product use in unapproved indication [Unknown]
